FAERS Safety Report 6278901-1 (Version None)
Quarter: 2009Q3

REPORT INFORMATION
  Report Type: 
  Country: None (occurrence: None)
  Receive Date: 20090723
  Receipt Date: 20090715
  Transmission Date: 20100115
  Serious: Yes (Life-Threatening, Hospitalization)
  Sender: FDA-Public Use
  Company Number: FR-TEVA-202737USA

PATIENT
  Sex: Male

DRUGS (15)
  1. BISELECT [Suspect]
     Dosage: 1 DOSAGE FORM 1 IN 1 DAY
     Route: 048
     Dates: start: 20090515, end: 20090602
  2. AMIODARONE HYDROCHLORIDE [Suspect]
     Dosage: 2 DOSAGE FORMS, 1 D
     Route: 048
     Dates: start: 20090507, end: 20090602
  3. FLUCONAZOLE [Suspect]
     Dosage: 400 MG SOLUTION FOR INJECTION
     Route: 042
     Dates: start: 20090514, end: 20090602
  4. AMPHOTERICIN B [Suspect]
     Dosage: 50 MG POWDER FOR INJECTION
     Route: 042
     Dates: start: 20090519, end: 20090624
  5. FUROSEMIDE [Concomitant]
     Route: 048
  6. BUPRENORPHINE HYDROCHLORIDE [Concomitant]
     Indication: DRUG DEPENDENCE
     Dosage: 0.4MG. SOLUTION FOR INJECTION
     Route: 042
  7. NICOTINE [Concomitant]
     Dosage: ONE DOSAGE FORM
     Route: 062
  8. HEPARIN [Concomitant]
     Dosage: 2 DOSAGE FORMS
     Dates: start: 20090429
  9. ESOMEPRAZOLE MAGNESIUM [Concomitant]
     Dosage: 1 DOSAGE FORM
     Dates: start: 20090429
  10. PARACETAMOL [Concomitant]
     Dosage: 4 DOSAGE FORM, 1 D
     Dates: start: 20090429
  11. FERROUS SULFATE TAB [Concomitant]
     Dosage: 2 DOSAGE FORMS, 1 DOSAGE FORM  2 IN 1 D
     Dates: start: 20090429
  12. SPIRONOLACTONE [Concomitant]
     Dosage: 1 DOSAGE FORM, 1 IN 1 D
     Dates: start: 20090430
  13. ALPRAZOLAM [Concomitant]
     Dosage: 3 DOSAGE FORMS,(1 DOSAGE FORM 3 IN 1 D)
     Dates: start: 20090430
  14. POTASSIUM CHLORIDE [Concomitant]
     Dates: start: 20090503, end: 20090524
  15. NEFOPAM HYDROCHLORIDE [Concomitant]
     Indication: PAIN
     Dates: start: 20090509, end: 20090527

REACTIONS (4)
  - CARDIO-RESPIRATORY ARREST [None]
  - DRUG INTERACTION [None]
  - HYPOKALAEMIA [None]
  - TORSADE DE POINTES [None]
